FAERS Safety Report 8312269-1 (Version None)
Quarter: 2012Q2

REPORT INFORMATION
  Report Type: 
  Country: None (occurrence: None)
  Receive Date: 20120425
  Receipt Date: 20120423
  Transmission Date: 20120825
  Serious: Yes (Other)
  Sender: FDA-Public Use
  Company Number: US-ROCHE-1062565

PATIENT
  Age: 59 Year
  Sex: Male
  Weight: 90.8 kg

DRUGS (2)
  1. FLUOROURACIL [Suspect]
     Indication: COLORECTAL CANCER METASTATIC
     Route: 048
  2. AVASTIN [Suspect]
     Indication: COLORECTAL CANCER METASTATIC
     Route: 042

REACTIONS (3)
  - THROMBOSIS [None]
  - BLOOD PRESSURE [None]
  - DIARRHOEA [None]
